FAERS Safety Report 12507348 (Version 1)
Quarter: 2016Q2

REPORT INFORMATION
  Report Type: Spontaneous
  Country: US (occurrence: None)
  Receive Date: 20160628
  Receipt Date: 20160628
  Transmission Date: 20160815
  Serious: No
  Sender: FDA-Public Use
  Company Number: None

PATIENT
  Sex: Male
  Weight: 127.01 kg

DRUGS (2)
  1. DIPHENHYDRAMINE. [Concomitant]
     Active Substance: DIPHENHYDRAMINE
  2. CEPHALEXIN. [Suspect]
     Active Substance: CEPHALEXIN
     Indication: ABSCESS
     Dosage: 40 CAPSULES FOUR TIMES A DAY
     Route: 048
     Dates: start: 20160619, end: 20160625

REACTIONS (5)
  - Hyperhidrosis [None]
  - Pallor [None]
  - Vomiting [None]
  - Nausea [None]
  - Product odour abnormal [None]
